FAERS Safety Report 4791670-7 (Version None)
Quarter: 2005Q4

REPORT INFORMATION
  Report Type: 
  Country: None (occurrence: None)
  Receive Date: 20051005
  Receipt Date: 20050919
  Transmission Date: 20060501
  Serious: Yes (Hospitalization)
  Sender: FDA-Public Use
  Company Number: 12356

PATIENT
  Age: 72 Year
  Sex: Female
  Weight: 54 kg

DRUGS (5)
  1. VINCRISTINE [Suspect]
     Indication: SMALL CELL LUNG CANCER STAGE UNSPECIFIED
     Dosage: 14 MG/M2 IV
     Route: 042
     Dates: start: 20050728
  2. DOXORUBICIN HCL [Suspect]
     Indication: SMALL CELL LUNG CANCER STAGE UNSPECIFIED
     Dosage: 40 MG IV
     Route: 042
     Dates: start: 20050728
  3. CYCLOPHOSPHAMIDE [Suspect]
     Indication: SMALL CELL LUNG CANCER STAGE UNSPECIFIED
     Dosage: 600 MG/M2 IV
     Route: 042
     Dates: start: 20050728
  4. DOMPERIDONE [Concomitant]
  5. CO-DANTHRAMER [Concomitant]

REACTIONS (6)
  - BLOOD CREATININE INCREASED [None]
  - DYSPNOEA [None]
  - PANCYTOPENIA [None]
  - PLEURITIC PAIN [None]
  - PYREXIA [None]
  - SPEECH DISORDER [None]
